FAERS Safety Report 4911105-0 (Version None)
Quarter: 2006Q1

REPORT INFORMATION
  Report Type: 
  Country: None (occurrence: None)
  Receive Date: 20060209
  Receipt Date: 20051215
  Transmission Date: 20060701
  Serious: Yes (Hospitalization)
  Sender: FDA-Public Use
  Company Number: 2006014565

PATIENT
  Age: 24 Year
  Sex: Male

DRUGS (6)
  1. ATARAX [Suspect]
     Indication: ILL-DEFINED DISORDER
     Dosage: 150 MG (100 M, 1 D), ORAL
     Route: 048
  2. PANTOPRAZOLE SODIUM [Suspect]
     Indication: ILL-DEFINED DISORDER
     Dosage: 40 MG (20 MG), ORAL
     Route: 048
  3. DIAZEPAM [Suspect]
     Indication: ILL-DEFINED DISORDER
     Dosage: 15 MG (10 MG, 1 D), ORAL
     Route: 048
  4. MEPRONIZINE (ACEPROMETAZINE, MEPROBAMATE) [Suspect]
     Indication: ILL-DEFINED DISORDER
     Dosage: 410 MG (1 D), ORAL
     Route: 048
  5. THERALENE (ALIMEMAZINE TARTRATE) [Suspect]
     Indication: ILL-DEFINED DISORDER
     Dosage: DF, ORAL
     Route: 048
  6. RISPERAL (RISPERIDONE) [Suspect]
     Indication: ILL-DEFINED DISORDER
     Dosage: DF, INTRAMUSCULAR
     Route: 030
     Dates: start: 20050901

REACTIONS (2)
  - EPILEPSY [None]
  - GRAND MAL CONVULSION [None]
